FAERS Safety Report 22230371 (Version 2)
Quarter: 2023Q2

REPORT INFORMATION
  Report Type: Report from Study
  Country: TR (occurrence: TR)
  Receive Date: 20230419
  Receipt Date: 20230519
  Transmission Date: 20230722
  Serious: Yes (Hospitalization)
  Sender: FDA-Public Use
  Company Number: TR-ABBVIE-4283484

PATIENT
  Age: 56 Year
  Sex: Male

DRUGS (3)
  1. CARBIDOPA\LEVODOPA [Suspect]
     Active Substance: CARBIDOPA\LEVODOPA
     Indication: Parkinson^s disease
     Dosage: MORNING DOSE (ML) 8.50 CONTINUOUS DOSE (ML) 6.50 EXTRA DOSE (ML) 1.50
     Route: 050
     Dates: start: 20230125
  2. CARBIDOPA\LEVODOPA [Suspect]
     Active Substance: CARBIDOPA\LEVODOPA
     Dosage: MORNING DOSE (ML) 8.50 CONTINUOUS DOSE (ML) 6.00 EXTRA DOSE (ML) 1.50
     Route: 050
     Dates: start: 20220208, end: 20230125
  3. DOPADEX SR [Concomitant]
     Indication: Parkinson^s disease
     Dosage: 50 MILLIGRAM
     Route: 048

REACTIONS (3)
  - Feeding disorder [Recovered/Resolved]
  - Dysphagia [Recovered/Resolved]
  - Mobility decreased [Unknown]

NARRATIVE: CASE EVENT DATE: 20230101
